FAERS Safety Report 8946435 (Version 2)
Quarter: 2012Q4

REPORT INFORMATION
  Report Type: 
  Country: US (occurrence: US)
  Receive Date: 20121204
  Receipt Date: 20121228
  Transmission Date: 20130627
  Serious: Yes (Other)
  Sender: FDA-Public Use
  Company Number: US-AMGEN-USASP2012073412

PATIENT
  Age: 35 Year
  Sex: Female
  Weight: 84.13 kg

DRUGS (7)
  1. ENBREL [Suspect]
     Indication: ANKYLOSING SPONDYLITIS
     Dosage: 50 mg/ml, qwk
     Route: 058
     Dates: start: 20120104, end: 20121216
  2. ENBREL [Suspect]
     Indication: PSORIATIC ARTHROPATHY
  3. METHOTREXATE [Concomitant]
     Dosage: 2.5 mg, 3 times/wk
     Route: 048
     Dates: end: 20121210
  4. TRIAMCINOLONE ACETONIDE [Concomitant]
     Dosage: 0.1 %, qd
  5. FOLIC ACID [Concomitant]
     Dosage: 800 mug, qd
     Route: 048
  6. PRISTIQ [Concomitant]
     Dosage: 50 mg, qd
     Route: 048
  7. DICLOFENAC SODIUM ER [Concomitant]
     Dosage: 100 mg, qd
     Route: 048

REACTIONS (7)
  - Intraductal papilloma of breast [Recovered/Resolved]
  - Spondyloarthropathy [Not Recovered/Not Resolved]
  - Mastitis [Not Recovered/Not Resolved]
  - Myalgia [Not Recovered/Not Resolved]
  - Bursitis [Not Recovered/Not Resolved]
  - Headache [Not Recovered/Not Resolved]
  - Breast cyst [Not Recovered/Not Resolved]
